FAERS Safety Report 8060865-1 (Version None)
Quarter: 2012Q1

REPORT INFORMATION
  Report Type: 
  Country: None (occurrence: None)
  Receive Date: 20120120
  Receipt Date: 20110218
  Transmission Date: 20120608
  Serious: No
  Sender: FDA-Public Use
  Company Number: US-ALLERGAN-1102451US

PATIENT
  Age: 79 Year
  Sex: Male

DRUGS (3)
  1. RESTASIS [Suspect]
     Indication: DRY EYE
  2. RESTASIS [Suspect]
     Indication: CORNEAL DYSTROPHY
     Dosage: 1 GTT, BID
     Route: 047
     Dates: start: 20110209
  3. VIGAMOX [Concomitant]
     Indication: EYE INJURY
     Dosage: UNK
     Route: 047

REACTIONS (7)
  - SUPERFICIAL INJURY OF EYE [None]
  - CORNEAL OEDEMA [None]
  - EYE PAIN [None]
  - VISION BLURRED [None]
  - VISUAL ACUITY REDUCED [None]
  - INSOMNIA [None]
  - INJURY CORNEAL [None]
